FAERS Safety Report 7243142-8 (Version None)
Quarter: 2011Q1

REPORT INFORMATION
  Report Type: 
  Country: None (occurrence: None)
  Receive Date: 20110125
  Receipt Date: 20110119
  Transmission Date: 20110831
  Serious: Yes (Death)
  Sender: FDA-Public Use
  Company Number: US-ABBOTT-11P-163-0697654-00

PATIENT
  Sex: Female
  Weight: 51.756 kg

DRUGS (8)
  1. ENTOCORT EC [Concomitant]
     Indication: CROHN'S DISEASE
  2. CIPRO [Concomitant]
     Indication: CROHN'S DISEASE
  3. LEVSIN [Concomitant]
     Indication: PROPHYLAXIS
  4. HUMIRA [Suspect]
     Indication: CROHN'S DISEASE
     Route: 058
     Dates: start: 20081030
  5. LEVSIN [Concomitant]
     Indication: ABDOMINAL PAIN UPPER
  6. VITAMIN B-12 [Concomitant]
     Indication: PRODUCT USED FOR UNKNOWN INDICATION
     Dates: start: 20101222, end: 20101222
  7. BIRTH CONTROL [Concomitant]
     Indication: CONTRACEPTION
  8. MERCAPTOPURINE [Concomitant]
     Indication: CROHN'S DISEASE
     Dates: start: 20060101

REACTIONS (7)
  - MENINGITIS MENINGOCOCCAL [None]
  - DISSEMINATED INTRAVASCULAR COAGULATION [None]
  - WHITE BLOOD CELL COUNT DECREASED [None]
  - MENINGOCOCCAL SEPSIS [None]
  - CROHN'S DISEASE [None]
  - PYREXIA [None]
  - MYALGIA [None]
